FAERS Safety Report 9034695 (Version 3)
Quarter: 2013Q1

REPORT INFORMATION
  Report Type: Spontaneous
  Country: FR (occurrence: FR)
  Receive Date: 20130128
  Receipt Date: 20130321
  Transmission Date: 20140127
  Serious: Yes (Hospitalization)
  Sender: FDA-Public Use
  Company Number: FR-VIIV HEALTHCARE LIMITED-B0858751C

PATIENT
  Age: 2 None
  Sex: 0

DRUGS (4)
  1. COMBIVIR [Suspect]
     Indication: HIV INFECTION
     Route: 064
     Dates: start: 20081125
  2. RETROVIR [Suspect]
     Indication: HIV INFECTION
     Route: 064
     Dates: start: 20081125
  3. RETROVIR [Suspect]
     Indication: ANTIVIRAL PROPHYLAXIS
     Dosage: .75MGK UNKNOWN
     Route: 048
     Dates: start: 20081231, end: 20090112
  4. LOPINAVIR [Suspect]
     Indication: HIV INFECTION
     Route: 064
     Dates: start: 20081125

REACTIONS (7)
  - Grand mal convulsion [Recovered/Resolved]
  - Partial seizures [Recovering/Resolving]
  - Neonatal respiratory distress syndrome [Recovered/Resolved]
  - Dyspepsia [Unknown]
  - Anaemia [Unknown]
  - Premature baby [Unknown]
  - Foetal exposure during pregnancy [Unknown]
